FAERS Safety Report 5914323-8 (Version None)
Quarter: 2008Q4

REPORT INFORMATION
  Report Type: 
  Country: None (occurrence: None)
  Receive Date: 20081009
  Receipt Date: 20080929
  Transmission Date: 20090506
  Serious: Yes (Other)
  Sender: FDA-Public Use
  Company Number: US-PFIZER INC-2008082440

PATIENT

DRUGS (1)
  1. LIPITOR [Suspect]

REACTIONS (2)
  - MOBILITY DECREASED [None]
  - MUSCLE SPASMS [None]
